FAERS Safety Report 15984344 (Version 2)
Quarter: 2022Q3

REPORT INFORMATION
  Report Type: Report from Study
  Country: DE (occurrence: DE)
  Receive Date: 20190219
  Receipt Date: 20220803
  Transmission Date: 20221027
  Serious: Yes (Life-Threatening, Other)
  Sender: FDA-Public Use
  Company Number: DE-EMA-20161012-PVEVHP-104610078

PATIENT
  Age: 83 Year
  Sex: Female
  Weight: 71 kg

DRUGS (16)
  1. HEPARIN SODIUM AND SODIUM CHLORIDE [Suspect]
     Active Substance: HEPARIN SODIUM
     Indication: Thrombosis prophylaxis
     Dosage: UNK
     Route: 058
     Dates: start: 19950913, end: 19950922
  2. METAMIZOLE [Suspect]
     Active Substance: METAMIZOLE
     Indication: Pain
     Dosage: UNK
     Route: 048
     Dates: start: 19950908, end: 19950908
  3. SODIUM PERCHLORATE [Suspect]
     Active Substance: SODIUM PERCHLORATE
     Indication: Thyroid disorder
     Dosage: UNK
     Route: 048
     Dates: start: 19950907, end: 19950916
  4. NIFEDIPINE [Suspect]
     Active Substance: NIFEDIPINE
     Indication: Cardiac failure
     Dosage: UNK
     Route: 048
     Dates: start: 19950907, end: 19950914
  5. ASPIRIN [Suspect]
     Active Substance: ASPIRIN
     Indication: Thrombosis prophylaxis
     Dosage: 100 MILLIGRAMS (MG) ONCE DAILY
     Route: 048
  6. METOCLOPRAMIDE HYDROCHLORIDE [Suspect]
     Active Substance: METOCLOPRAMIDE HYDROCHLORIDE
     Indication: Vomiting
     Dosage: UNK
     Route: 048
     Dates: start: 19950909, end: 19950923
  7. METHIMAZOLE [Suspect]
     Active Substance: METHIMAZOLE
     Indication: Thyroid disorder
     Dosage: UNK,  INTAVENOUS (NOT OTHERWISE SPECIFIED)
     Route: 042
     Dates: start: 19950916, end: 19950917
  8. PIRITRAMIDE [Suspect]
     Active Substance: PIRITRAMIDE
     Indication: Pain
     Dosage: UNK, VIA INTRAVENOUS (NOT OTHERWISE SPECIFIED) ROUTE
     Route: 042
     Dates: start: 19950908, end: 19950909
  9. OFLOXACIN [Suspect]
     Active Substance: OFLOXACIN
     Indication: Urinary tract infection
     Dosage: UNK
     Route: 048
     Dates: start: 19950917, end: 19950923
  10. BROMAZEPAM [Suspect]
     Active Substance: BROMAZEPAM
     Indication: Sedation
     Dosage: UNK
     Route: 048
     Dates: start: 19950907, end: 19950912
  11. BACTRIM [Suspect]
     Active Substance: SULFAMETHOXAZOLE\TRIMETHOPRIM
     Indication: Urinary tract infection
     Dosage: UNK
     Route: 048
     Dates: start: 19950913, end: 19950915
  12. NISOLDIPINE [Concomitant]
     Active Substance: NISOLDIPINE
     Indication: Cardiac failure
     Dosage: UNK
     Route: 065
  13. NITROGLYCERIN [Concomitant]
     Active Substance: NITROGLYCERIN
     Indication: Angiogram
     Dosage: 2 (DAILY DOSE)
     Route: 055
     Dates: start: 19950907, end: 19950907
  14. ISOSORBIDE MONONITRATE [Concomitant]
     Active Substance: ISOSORBIDE MONONITRATE
     Indication: Coronary artery disease
     Dosage: 20 MILLIGRAMS (MG) ONCE DAILY
     Route: 048
     Dates: end: 19950923
  15. FAMOTIDINE [Concomitant]
     Active Substance: FAMOTIDINE
     Indication: Prophylaxis
     Dosage: 1 (DF) DOSAGE FORM ONCE DAILY
     Route: 048
  16. MOLSIDOMINE [Concomitant]
     Active Substance: MOLSIDOMINE
     Indication: Coronary artery disease
     Dosage: 2 (DF) DOSAGE FORM ONCE DAILY, (CORVATON RETARD)
     Route: 048

REACTIONS (6)
  - Mucosal erosion [Recovering/Resolving]
  - Rash [Recovering/Resolving]
  - Stevens-Johnson syndrome [Recovering/Resolving]
  - Toxic epidermal necrolysis [Recovering/Resolving]
  - Conjunctivitis [Recovering/Resolving]
  - Pain [Unknown]

NARRATIVE: CASE EVENT DATE: 19950922
